FAERS Safety Report 7170511-7 (Version None)
Quarter: 2010Q4

REPORT INFORMATION
  Report Type: 
  Country: None (occurrence: None)
  Receive Date: 20101214
  Receipt Date: 20101214
  Transmission Date: 20110411
  Serious: Yes (Hospitalization)
  Sender: FDA-Public Use
  Company Number: None

PATIENT
  Age: 54 Year
  Sex: Male
  Weight: 92.2 kg

DRUGS (2)
  1. MELOXICAM [Suspect]
     Indication: PAIN
     Dosage: 15 MG EVERY DAY OTHER
     Route: 050
     Dates: start: 20090515, end: 20101115
  2. ASPIRIN [Suspect]
     Indication: DIABETES MELLITUS
     Dosage: 81 MG EVERY DAY PO
     Route: 048
     Dates: end: 20101115

REACTIONS (1)
  - ANAEMIA [None]
